FAERS Safety Report 7971036-9 (Version None)
Quarter: 2011Q4

REPORT INFORMATION
  Report Type: 
  Country: None (occurrence: None)
  Receive Date: 20111212
  Receipt Date: 20111212
  Transmission Date: 20120403
  Serious: Yes (Hospitalization)
  Sender: FDA-Public Use
  Company Number: None

PATIENT
  Age: 38 Year
  Sex: Male
  Weight: 127 kg

DRUGS (1)
  1. AVELOX [Suspect]
     Indication: PNEUMONITIS
     Dosage: 400MG
     Route: 048
     Dates: start: 20111202, end: 20111207

REACTIONS (12)
  - TREMOR [None]
  - HYPERSENSITIVITY [None]
  - DELUSION [None]
  - PARANOIA [None]
  - TENDON INJURY [None]
  - HALLUCINATION [None]
  - CONFUSIONAL STATE [None]
  - CONTUSION [None]
  - MYALGIA [None]
  - TENDONITIS [None]
  - NERVOUSNESS [None]
  - AGITATION [None]
